FAERS Safety Report 4547585-2 (Version None)
Quarter: 2005Q1

REPORT INFORMATION
  Report Type: 
  Country: None (occurrence: None)
  Receive Date: 20050107
  Receipt Date: 20050104
  Transmission Date: 20050727
  Serious: Yes (Hospitalization)
  Sender: FDA-Public Use
  Company Number: CA-BRISTOL-MYERS SQUIBB COMPANY-12814828

PATIENT
  Age: 62 Year
  Sex: Female

DRUGS (6)
  1. BLINDED: MURAGLITAZAR [Suspect]
     Indication: DIABETES MELLITUS NON-INSULIN-DEPENDENT
     Route: 048
     Dates: start: 20041209
  2. GLIMEPIRIDE [Suspect]
     Indication: DIABETES MELLITUS NON-INSULIN-DEPENDENT
     Route: 048
     Dates: start: 20041209
  3. METFORMIN HCL [Suspect]
     Indication: DIABETES MELLITUS NON-INSULIN-DEPENDENT
     Route: 048
     Dates: start: 20041122, end: 20050103
  4. COZAAR [Concomitant]
     Dates: start: 19940101
  5. INDAPAMIDE [Concomitant]
     Dates: start: 19940101
  6. MODUCARE [Concomitant]
     Dates: start: 19990101

REACTIONS (1)
  - NON-CARDIAC CHEST PAIN [None]
